FAERS Safety Report 7681227-2 (Version None)
Quarter: 2011Q3

REPORT INFORMATION
  Report Type: 
  Country: None (occurrence: None)
  Receive Date: 20110812
  Receipt Date: 20110802
  Transmission Date: 20111222
  Serious: Yes (Hospitalization, Disabling, Other)
  Sender: FDA-Public Use
  Company Number: US-ELI_LILLY_AND_COMPANY-US201108001781

PATIENT
  Sex: Male

DRUGS (5)
  1. HUMALOG MIX 50/50 [Suspect]
     Indication: DIABETES MELLITUS
     Dosage: UNK
  2. HUMALOG MIX 50/50 [Suspect]
     Dosage: 38 U, EACH EVENING
     Dates: start: 20070101
  3. HUMALOG MIX 50/50 [Suspect]
     Dosage: 34 U, EACH MORNING
     Dates: start: 20070101
  4. LIPITOR [Concomitant]
     Dosage: UNK
  5. COREG [Concomitant]
     Dosage: UNK

REACTIONS (5)
  - CARDIAC FLUTTER [None]
  - MEMORY IMPAIRMENT [None]
  - ARTHROPATHY [None]
  - MUSCULOSKELETAL DISORDER [None]
  - DEMENTIA ALZHEIMER'S TYPE [None]
